FAERS Safety Report 9376604 (Version 1)
Quarter: 2013Q3

REPORT INFORMATION
  Report Type: Spontaneous
  Country: IT (occurrence: IT)
  Receive Date: 20130701
  Receipt Date: 20130701
  Transmission Date: 20140515
  Serious: Yes (Life-Threatening)
  Sender: FDA-Public Use
  Company Number: IT-ACCORD-018253

PATIENT
  Age: 72 Year
  Sex: Male

DRUGS (4)
  1. QUETIAPINE FUMARATE [Suspect]
     Indication: PRODUCT USED FOR UNKNOWN INDICATION
     Dates: start: 20130409, end: 20130409
  2. LACIREX [Concomitant]
     Indication: HYPERTENSION
     Dosage: 4 MG
  3. RATACAND [Concomitant]
     Indication: HYPERTENSION
     Dosage: 16 MG
  4. TAVOR [Concomitant]
     Indication: ANXIETY
     Dosage: 2.5 MG

REACTIONS (3)
  - Coma [Recovered/Resolved]
  - Intentional self-injury [Unknown]
  - Drug abuse [Unknown]
